FAERS Safety Report 18831299 (Version 1)
Quarter: 2021Q1

REPORT INFORMATION
  Report Type: Spontaneous
  Country: AU (occurrence: AU)
  Receive Date: 20210203
  Receipt Date: 20210203
  Transmission Date: 20210419
  Serious: Yes (Death, Hospitalization, Other)
  Sender: FDA-Public Use
  Company Number: AU-LUPIN PHARMACEUTICALS INC.-2021-01028

PATIENT
  Sex: Male

DRUGS (5)
  1. POLYETHYLENE GLYCOL [Suspect]
     Active Substance: POLYETHYLENE GLYCOLS
     Indication: CONSTIPATION
     Dosage: UNK
     Route: 065
  2. BENZTROPINE [BENZATROPINE] [Interacting]
     Active Substance: BENZTROPINE
     Dosage: 2 MILLIGRAM, BID
     Route: 065
  3. BENZTROPINE [BENZATROPINE] [Interacting]
     Active Substance: BENZTROPINE
     Indication: PRODUCT USED FOR UNKNOWN INDICATION
     Dosage: 2 MILLIGRAM, QD
     Route: 065
  4. H2NAO4P ??? H2O 1.102 G AND NA2HPO4 0.398 G [Suspect]
     Active Substance: SODIUM PHOSPHATE, DIBASIC, ANHYDROUS\SODIUM PHOSPHATE, MONOBASIC, MONOHYDRATE
     Indication: CONSTIPATION
     Dosage: UNK
     Route: 065
  5. OLANZAPINE. [Interacting]
     Active Substance: OLANZAPINE
     Indication: SCHIZOPHRENIA
     Dosage: 10 MILLIGRAM, QD
     Route: 065

REACTIONS (8)
  - Constipation [Fatal]
  - Abdominal adhesions [Fatal]
  - Drug ineffective [Unknown]
  - Drug interaction [Fatal]
  - Small intestinal obstruction [Fatal]
  - Pneumonia aspiration [Fatal]
  - Multiple organ dysfunction syndrome [Fatal]
  - Acute kidney injury [Fatal]
